FAERS Safety Report 9000030 (Version 3)
Quarter: 2013Q1

REPORT INFORMATION
  Report Type: Spontaneous
  Country: US (occurrence: US)
  Receive Date: 20130102
  Receipt Date: 20130124
  Transmission Date: 20140127
  Serious: Yes (Hospitalization, Other)
  Sender: FDA-Public Use
  Company Number: US-PFIZER INC-2013000015

PATIENT
  Sex: Male

DRUGS (1)
  1. NORVASC [Suspect]
     Dosage: 10 MG, UNK
     Dates: start: 20101206, end: 20130108

REACTIONS (6)
  - Hypertension [Unknown]
  - Nasal cavity cancer [Unknown]
  - Skin cancer [Unknown]
  - Headache [Unknown]
  - Swelling face [Unknown]
  - Ocular hyperaemia [Unknown]
